FAERS Safety Report 5197132-X (Version None)
Quarter: 2007Q1

REPORT INFORMATION
  Report Type: 
  Country: None (occurrence: None)
  Receive Date: 20070103
  Receipt Date: 20061228
  Transmission Date: 20070707
  Serious: Yes (Hospitalization)
  Sender: FDA-Public Use
  Company Number: BR-GLAXOSMITHKLINE-A0632978A

PATIENT
  Age: 4 Year
  Sex: Male
  Weight: 20 kg

DRUGS (1)
  1. CLAVULIN [Suspect]
     Indication: VIRAL INFECTION
     Route: 048
     Dates: start: 20061222, end: 20061223

REACTIONS (4)
  - DIARRHOEA [None]
  - ERYTHEMA [None]
  - PHARMACEUTICAL PRODUCT COMPLAINT [None]
  - VOMITING [None]
